FAERS Safety Report 13957396 (Version 1)
Quarter: 2017Q3

REPORT INFORMATION
  Report Type: Spontaneous
  Country: IT (occurrence: IT)
  Receive Date: 20170912
  Receipt Date: 20170912
  Transmission Date: 20171128
  Serious: Yes (Other)
  Sender: FDA-Public Use
  Company Number: IT-ROCHE-1986974

PATIENT
  Age: 57 Year
  Sex: Male

DRUGS (3)
  1. RIBAVIRIN. [Suspect]
     Active Substance: RIBAVIRIN
     Indication: CHRONIC HEPATITIS C
     Dosage: PERIOD: 366 DAYS
     Route: 065
     Dates: start: 2006, end: 2007
  2. RIBAVIRIN. [Suspect]
     Active Substance: RIBAVIRIN
     Dosage: PERIOD: 183 DAYS
     Route: 065
     Dates: start: 2015
  3. HARVONI [Suspect]
     Active Substance: LEDIPASVIR\SOFOSBUVIR
     Indication: CHRONIC HEPATITIS C
     Dosage: 90 MG/400 MG - FILM-COATED TABLETS,PER-183 DAYS
     Route: 065
     Dates: start: 2015

REACTIONS (4)
  - Drug ineffective [Unknown]
  - B-cell lymphoma [Unknown]
  - Hepatocellular carcinoma [Unknown]
  - Viral mutation identified [Recovering/Resolving]

NARRATIVE: CASE EVENT DATE: 2016
